FAERS Safety Report 9698667 (Version 2)
Quarter: 2013Q4

REPORT INFORMATION
  Report Type: Report from Study
  Country: BE (occurrence: BE)
  Receive Date: 20131120
  Receipt Date: 20131120
  Transmission Date: 20140711
  Serious: Yes (Death, Life-Threatening)
  Sender: FDA-Public Use
  Company Number: BE-SA-CLOF-1001412

PATIENT
  Age: 49 Year
  Sex: Male
  Weight: 102 kg

DRUGS (3)
  1. CLOFARABINE [Suspect]
     Indication: ACUTE MYELOID LEUKAEMIA
     Dosage: UNK
     Route: 042
     Dates: start: 20110113
  2. IDARUBICIN [Suspect]
     Indication: ACUTE MYELOID LEUKAEMIA
     Dosage: UNK
     Route: 042
     Dates: start: 20110113
  3. CYTARABINE [Suspect]
     Indication: ACUTE MYELOID LEUKAEMIA
     Dosage: UNK
     Route: 042
     Dates: start: 20110113

REACTIONS (7)
  - Megacolon [Fatal]
  - Cerebral haemorrhage [Fatal]
  - Intestinal infarction [Fatal]
  - Circulatory collapse [Fatal]
  - Septic shock [Fatal]
  - Abdominal pain [Not Recovered/Not Resolved]
  - Pancytopenia [Unknown]
